FAERS Safety Report 8854878 (Version 1)
Quarter: 2012Q4

REPORT INFORMATION
  Report Type: 
  Country: FI (occurrence: FI)
  Receive Date: 20121023
  Receipt Date: 20121023
  Transmission Date: 20130627
  Serious: Yes (Other)
  Sender: FDA-Public Use
  Company Number: FI-AMGEN-FINSP2012066876

PATIENT
  Age: 70 Year
  Sex: Male

DRUGS (3)
  1. XGEVA [Suspect]
     Indication: PROSTATE CANCER METASTATIC
     Dosage: UNK UNK, q6wk
     Dates: start: 201112, end: 201206
  2. CABAZITAXEL [Concomitant]
     Indication: PROSTATE CANCER METASTATIC
  3. ABIRATERONE [Concomitant]
     Indication: PROSTATE CANCER METASTATIC

REACTIONS (1)
  - Osteonecrosis of jaw [Unknown]
